FAERS Safety Report 10235743 (Version 1)
Quarter: 2014Q2

REPORT INFORMATION
  Report Type: Spontaneous
  Country: US (occurrence: US)
  Receive Date: 20140613
  Receipt Date: 20140613
  Transmission Date: 20141212
  Serious: Yes (Death)
  Sender: FDA-Public Use
  Company Number: US-ASTELLAS-2014US006728

PATIENT
  Age: 58 Year
  Sex: Male

DRUGS (3)
  1. XTANDI [Suspect]
     Indication: PROSTATE CANCER
     Route: 048
     Dates: start: 20130412
  2. XTANDI [Suspect]
     Indication: BONE CANCER
  3. XTANDI [Suspect]
     Indication: HEPATIC CANCER

REACTIONS (1)
  - Death [Fatal]
